FAERS Safety Report 4445973-6 (Version None)
Quarter: 2004Q3

REPORT INFORMATION
  Report Type: 
  Country: None (occurrence: None)
  Receive Date: 20040910
  Receipt Date: 20040518
  Transmission Date: 20050211
  Serious: Yes (Life-Threatening, Hospitalization, Other)
  Sender: FDA-Public Use
  Company Number: US-MERCK-0405USA01402

PATIENT
  Age: 74 Year
  Sex: Male
  Weight: 69 kg

DRUGS (11)
  1. PLAVIX [Concomitant]
     Indication: TRANSIENT ISCHAEMIC ATTACK
     Route: 048
     Dates: start: 20030528
  2. PLAVIX [Concomitant]
     Indication: CEREBROVASCULAR ACCIDENT
     Route: 048
     Dates: start: 20030528
  3. DILTIAZEM HYDROCHLORIDE [Concomitant]
     Indication: HYPERTENSION
     Route: 048
  4. NEURONTIN [Concomitant]
     Indication: NEUROPATHIC PAIN
     Route: 048
     Dates: start: 20010417
  5. PRINIVIL [Concomitant]
     Indication: HYPERTENSION
     Route: 048
  6. NIACIN [Concomitant]
     Route: 065
     Dates: start: 20040408
  7. ACIPHEX [Concomitant]
     Indication: GASTROOESOPHAGEAL REFLUX DISEASE
     Route: 048
     Dates: start: 20030815
  8. ACIPHEX [Concomitant]
     Indication: GASTROINTESTINAL HAEMORRHAGE
     Route: 048
     Dates: start: 20030815
  9. ZOCOR [Suspect]
     Indication: HYPERCHOLESTEROLAEMIA
     Route: 048
     Dates: start: 20040408, end: 20040409
  10. ZOCOR [Suspect]
     Route: 048
     Dates: start: 19991108, end: 20040407
  11. ZOCOR [Suspect]
     Route: 048
     Dates: start: 20040410, end: 20040401

REACTIONS (7)
  - BLOOD CREATINE PHOSPHOKINASE INCREASED [None]
  - CHROMATURIA [None]
  - HEPATIC ENZYME INCREASED [None]
  - HYPERHIDROSIS [None]
  - MUSCLE CRAMP [None]
  - PAIN [None]
  - RASH PRURITIC [None]
